FAERS Safety Report 9094680 (Version 2)
Quarter: 2013Q1

REPORT INFORMATION
  Report Type: Report from Study
  Country: RU (occurrence: RU)
  Receive Date: 20130220
  Receipt Date: 20130304
  Transmission Date: 20140127
  Serious: Yes (Hospitalization)
  Sender: FDA-Public Use
  Company Number: RU-BIOGENIDEC-2013BI015381

PATIENT
  Age: 25 Year
  Sex: Male
  Weight: 73 kg

DRUGS (1)
  1. AVONEX [Suspect]
     Indication: MULTIPLE SCLEROSIS
     Dates: start: 20110830

REACTIONS (2)
  - Erysipelas [Recovered/Resolved]
  - Upper respiratory tract infection [Recovered/Resolved]
